FAERS Safety Report 19300687 (Version 2)
Quarter: 2021Q3

REPORT INFORMATION
  Report Type: Report from Study
  Country: MY (occurrence: MY)
  Receive Date: 20210524
  Receipt Date: 20210709
  Transmission Date: 20211014
  Serious: Yes (Death, Other)
  Sender: FDA-Public Use
  Company Number: MY-SEATTLE GENETICS-2021SGN02876

PATIENT
  Age: 56 Year
  Sex: Male

DRUGS (1)
  1. BRENTUXIMAB VEDOTIN [Suspect]
     Active Substance: BRENTUXIMAB VEDOTIN
     Indication: ANAPLASTIC LARGE CELL LYMPHOMA T- AND NULL-CELL TYPES
     Dosage: 90 MILLIGRAM, Q3WEEKS
     Route: 042
     Dates: start: 20210314

REACTIONS (1)
  - Non-Hodgkin^s lymphoma recurrent [Fatal]

NARRATIVE: CASE EVENT DATE: 20210507
